FAERS Safety Report 6243525-9 (Version None)
Quarter: 2009Q2

REPORT INFORMATION
  Report Type: 
  Country: None (occurrence: None)
  Receive Date: 20090624
  Receipt Date: 20090615
  Transmission Date: 20091009
  Serious: Yes (Hospitalization)
  Sender: FDA-Public Use
  Company Number: PHEH2009US05884

PATIENT
  Sex: Female
  Weight: 61.678 kg

DRUGS (8)
  1. RECLAST [Suspect]
     Indication: OSTEOPOROSIS
     Dosage: 5 MG, ONCE YEARLY
     Route: 042
     Dates: start: 20090520
  2. NORVASC [Concomitant]
  3. LANTUS [Concomitant]
  4. ASPIRIN [Concomitant]
  5. ISOSORBIDE [Concomitant]
  6. SYNTHROID [Concomitant]
  7. METOPROLOL TARTRATE [Concomitant]
  8. METFORMIN [Concomitant]

REACTIONS (2)
  - URINARY TRACT INFECTION [None]
  - VOMITING [None]
